FAERS Safety Report 16569970 (Version 1)
Quarter: 2019Q3

REPORT INFORMATION
  Report Type: Spontaneous
  Country: GB (occurrence: GB)
  Receive Date: 20190715
  Receipt Date: 20190715
  Transmission Date: 20191004
  Serious: Yes (Hospitalization)
  Sender: FDA-Public Use
  Company Number: GB-B.I. PHARMACEUTICALS,INC./RIDGEFIELD-2019-12-002134

PATIENT
  Age: 58 Year
  Sex: Male

DRUGS (7)
  1. RASAGILINE. [Concomitant]
     Active Substance: RASAGILINE
     Indication: PRODUCT USED FOR UNKNOWN INDICATION
     Route: 065
  2. COCODAMOL [Concomitant]
     Active Substance: ACETAMINOPHEN\CODEINE PHOSPHATE
     Indication: PRODUCT USED FOR UNKNOWN INDICATION
     Route: 065
  3. CO-BENELDOPA [Concomitant]
     Active Substance: BENSERAZIDE HYDROCHLORIDE\LEVODOPA
     Indication: PRODUCT USED FOR UNKNOWN INDICATION
     Route: 065
  4. FUROSEMIDE. [Concomitant]
     Active Substance: FUROSEMIDE
     Indication: PRODUCT USED FOR UNKNOWN INDICATION
     Route: 065
  5. PREGABALIN. [Concomitant]
     Active Substance: PREGABALIN
     Indication: PRODUCT USED FOR UNKNOWN INDICATION
     Route: 065
  6. OPICAPONE [Concomitant]
     Active Substance: OPICAPONE
     Indication: PRODUCT USED FOR UNKNOWN INDICATION
     Route: 065
  7. SIFROL [Suspect]
     Active Substance: PRAMIPEXOLE
     Indication: PARKINSON^S DISEASE
     Route: 048

REACTIONS (4)
  - Depression [Unknown]
  - Suicide attempt [Unknown]
  - Suicidal ideation [Not Recovered/Not Resolved]
  - Hypersexuality [Not Recovered/Not Resolved]

NARRATIVE: CASE EVENT DATE: 2018
